FAERS Safety Report 14726775 (Version 1)
Quarter: 2018Q2

REPORT INFORMATION
  Report Type: Spontaneous
  Country: BR (occurrence: BR)
  Receive Date: 20180406
  Receipt Date: 20180406
  Transmission Date: 20180711
  Serious: Yes (Hospitalization)
  Sender: FDA-Public Use
  Company Number: PHHY2018BR059040

PATIENT
  Age: 66 Year
  Sex: Female
  Weight: 54 kg

DRUGS (10)
  1. NPH INSULIN [Concomitant]
     Active Substance: INSULIN BEEF
     Indication: HYPERGLYCAEMIA
     Dosage: UNK
     Route: 065
     Dates: start: 20180110
  2. RIVAROXABAN [Concomitant]
     Active Substance: RIVAROXABAN
     Indication: PROPHYLAXIS
     Dosage: UNK
     Route: 065
     Dates: start: 20180116
  3. FUROSEMIDE. [Concomitant]
     Active Substance: FUROSEMIDE
     Indication: HYPERTENSION
     Dosage: UNK
     Route: 065
     Dates: start: 20180202, end: 20180316
  4. METOCLOPRAMIDE. [Concomitant]
     Active Substance: METOCLOPRAMIDE
     Indication: NAUSEA
     Dosage: UNK
     Route: 065
     Dates: start: 20180301, end: 20180306
  5. LOSARTAN. [Concomitant]
     Active Substance: LOSARTAN
     Indication: HYPERTENSION
     Dosage: UNK
     Dates: start: 20180303
  6. LETROZOLE. [Suspect]
     Active Substance: LETROZOLE
     Dosage: 2.5 MG, UNK
     Route: 048
     Dates: start: 20180312
  7. SPIRONOLACTONE. [Concomitant]
     Active Substance: SPIRONOLACTONE
     Indication: ANAEMIA
     Dosage: UNK
     Route: 065
     Dates: start: 20180217, end: 20180316
  8. LETROZOLE. [Suspect]
     Active Substance: LETROZOLE
     Indication: INVASIVE DUCTAL BREAST CARCINOMA
     Dosage: 2.5 MG, UNK
     Route: 048
     Dates: start: 20180202, end: 20180306
  9. ONDANSETRON [Concomitant]
     Active Substance: ONDANSETRON
     Indication: NAUSEA
     Route: 065
  10. MORPHINE [Concomitant]
     Active Substance: MORPHINE
     Indication: DYSPNOEA
     Dosage: UNK
     Route: 065
     Dates: start: 20171219

REACTIONS (10)
  - Blood creatinine increased [Recovered/Resolved]
  - Blood urea increased [Unknown]
  - Respiratory rate increased [Unknown]
  - Blood glucose increased [Unknown]
  - Hyponatraemia [Recovered/Resolved]
  - Hypokalaemia [Recovered/Resolved]
  - Respiratory distress [Unknown]
  - Chest pain [Recovered/Resolved]
  - Heart rate increased [Unknown]
  - Acute kidney injury [Recovered/Resolved]
